FAERS Safety Report 11790126 (Version 1)
Quarter: 2015Q4

REPORT INFORMATION
  Report Type: Spontaneous
  Country: US (occurrence: US)
  Receive Date: 20151201
  Receipt Date: 20151201
  Transmission Date: 20160305
  Serious: No
  Sender: FDA-Public Use
  Company Number: US-009507513-1511USA011119

PATIENT
  Sex: Female

DRUGS (1)
  1. NEXPLANON [Suspect]
     Active Substance: ETONOGESTREL
     Dosage: 1 DF, ONE ROD, IN RIGHT ARM
     Route: 059
     Dates: start: 20141006

REACTIONS (1)
  - Pharyngitis streptococcal [Not Recovered/Not Resolved]
